FAERS Safety Report 8724366 (Version 6)
Quarter: 2013Q2

REPORT INFORMATION
  Report Type: Spontaneous
  Country: JP (occurrence: JP)
  Receive Date: 20120815
  Receipt Date: 20130514
  Transmission Date: 20140414
  Serious: Yes (Hospitalization, Other)
  Sender: FDA-Public Use
  Company Number: JP-ABBOTT-12P-087-0967414-00

PATIENT
  Age: 49 Year
  Sex: Male

DRUGS (7)
  1. NORVIR [Suspect]
     Indication: HIV INFECTION
     Dates: start: 20051006, end: 20111222
  2. NORVIR [Suspect]
     Dates: start: 20111224
  3. REYATAZ [Suspect]
     Indication: HIV INFECTION
     Dosage: 300-400 MG/DAY
     Route: 048
     Dates: start: 20040401, end: 20111222
  4. REYATAZ [Suspect]
     Dosage: 300-400 MG/DAY
     Route: 048
     Dates: start: 20111224
  5. COMBIVIR [Suspect]
     Indication: HIV INFECTION
     Route: 048
     Dates: start: 20040401, end: 20111222
  6. COMBIVIR [Suspect]
     Route: 048
     Dates: start: 20120116
  7. ALOSITOL [Concomitant]
     Indication: HYPERURICAEMIA
     Dosage: 100 MG X 2 DAILY DOSE
     Route: 048
     Dates: start: 20040401

REACTIONS (2)
  - Hyperkalaemia [Recovering/Resolving]
  - Renal failure chronic [Not Recovered/Not Resolved]
